FAERS Safety Report 5162087-0 (Version None)
Quarter: 2006Q4

REPORT INFORMATION
  Report Type: 
  Country: None (occurrence: None)
  Receive Date: 20061121
  Receipt Date: 20061114
  Transmission Date: 20070319
  Serious: Yes (Other)
  Sender: FDA-Public Use
  Company Number: CH-2006-033661

PATIENT
  Age: 36 Year
  Sex: Female
  Weight: 96 kg

DRUGS (4)
  1. YASMIN [Suspect]
     Indication: ORAL CONTRACEPTION
     Dosage: 1 TAB(S), ORAL
     Route: 048
  2. PREDNISONE TAB [Concomitant]
  3. RABEPRAZOLE SODIUM [Concomitant]
  4. SERETIDE (SALMETEROL XINAFOATE, FLUTICASONE PROPIONATE) [Concomitant]

REACTIONS (1)
  - SCLERODERMA [None]
